FAERS Safety Report 20506884 (Version 2)
Quarter: 2022Q1

REPORT INFORMATION
  Report Type: Spontaneous
  Country: GB (occurrence: GB)
  Receive Date: 20220223
  Receipt Date: 20220225
  Transmission Date: 20220424
  Serious: Yes (Other)
  Sender: FDA-Public Use
  Company Number: GB-ANIPHARMA-2022-UK-000030

PATIENT
  Age: 53 Year
  Sex: Female
  Weight: 75 kg

DRUGS (7)
  1. CANDESARTAN CILEXETIL [Suspect]
     Active Substance: CANDESARTAN CILEXETIL
     Indication: Headache
     Dosage: 12 MG QD
     Route: 065
     Dates: start: 20220112, end: 20220203
  2. ALVERINE [Concomitant]
     Active Substance: ALVERINE
     Route: 065
  3. BECLOMETHASONE [Concomitant]
     Active Substance: BECLOMETHASONE
     Route: 065
  4. CO-DYDRAMOL [Concomitant]
     Active Substance: ACETAMINOPHEN\DIHYDROCODEINE
     Route: 065
  5. FORMOTEROL [Concomitant]
     Active Substance: FORMOTEROL
     Route: 065
  6. MIRABEGRON [Concomitant]
     Active Substance: MIRABEGRON
     Route: 065
  7. ALBUTEROL [Concomitant]
     Active Substance: ALBUTEROL
     Route: 065

REACTIONS (4)
  - Arthralgia [Recovering/Resolving]
  - Dry skin [Recovering/Resolving]
  - Pain in extremity [Unknown]
  - Product use in unapproved indication [Recovered/Resolved]

NARRATIVE: CASE EVENT DATE: 20220112
